FAERS Safety Report 12393682 (Version 4)
Quarter: 2016Q2

REPORT INFORMATION
  Report Type: Report from Study
  Country: US (occurrence: US)
  Receive Date: 20160523
  Receipt Date: 20160623
  Transmission Date: 20160815
  Serious: Yes (Hospitalization, Disabling, Other)
  Sender: FDA-Public Use
  Company Number: US-GILEAD-2016-0214936

PATIENT
  Age: 13 Year
  Sex: Female
  Weight: 67.2 kg

DRUGS (9)
  1. LANSOPRAZOLE. [Concomitant]
     Active Substance: LANSOPRAZOLE
  2. AMBRISENTAN [Suspect]
     Active Substance: AMBRISENTAN
     Indication: RIGHT-TO-LEFT CARDIAC SHUNT
  3. AMBRISENTAN [Suspect]
     Active Substance: AMBRISENTAN
     Indication: PULMONARY HYPERTENSION
     Dosage: 10 MG, QD
     Route: 048
  4. REGLAN [Concomitant]
     Active Substance: METOCLOPRAMIDE HYDROCHLORIDE
  5. ASPIRIN                            /00002701/ [Concomitant]
     Active Substance: ASPIRIN
  6. CARAFATE [Concomitant]
     Active Substance: SUCRALFATE
  7. TOPIRAMATE. [Concomitant]
     Active Substance: TOPIRAMATE
  8. ADCIRCA [Concomitant]
     Active Substance: TADALAFIL
  9. LOVENOX [Concomitant]
     Active Substance: ENOXAPARIN SODIUM

REACTIONS (3)
  - Off label use [Not Recovered/Not Resolved]
  - Menorrhagia [Unknown]
  - Impaired gastric emptying [Not Recovered/Not Resolved]
